FAERS Safety Report 4753727-6 (Version None)
Quarter: 2005Q3

REPORT INFORMATION
  Report Type: 
  Country: None (occurrence: None)
  Receive Date: 20050825
  Receipt Date: 20050815
  Transmission Date: 20060218
  Serious: Yes (Other)
  Sender: FDA-Public Use
  Company Number: GXKR2005GB01469

PATIENT
  Age: 51 Year
  Sex: Female

DRUGS (3)
  1. PROPRANOLOL [Suspect]
     Indication: PALPITATIONS
     Dosage: 10 MG, BID, ORAL
     Route: 048
     Dates: start: 20040101
  2. PRAVASTATIN [Suspect]
     Indication: BLOOD CHOLESTEROL INCREASED
     Dosage: ORAL
     Route: 048
     Dates: start: 20040101
  3. ALCOHOL (ETHANOL) [Suspect]

REACTIONS (1)
  - HYPOGLYCAEMIA [None]
